FAERS Safety Report 11671949 (Version 1)
Quarter: 2015Q4

REPORT INFORMATION
  Report Type: Spontaneous
  Country: US (occurrence: US)
  Receive Date: 20151027
  Receipt Date: 20151027
  Transmission Date: 20160304
  Serious: No
  Sender: FDA-Public Use
  Company Number: US-ELI_LILLY_AND_COMPANY-US201006000266

PATIENT
  Age: 69 Year
  Sex: Female

DRUGS (2)
  1. FORTEO [Suspect]
     Active Substance: TERIPARATIDE
     Indication: OSTEOPOROSIS
     Dosage: 20 UG, DAILY (1/D)
     Dates: start: 20100520
  2. TYLENOL [Concomitant]
     Active Substance: ACETAMINOPHEN
     Indication: PAIN
     Dosage: UNK, AS NEEDED
     Dates: start: 201005

REACTIONS (12)
  - Hypertension [Not Recovered/Not Resolved]
  - Injection site haemorrhage [Recovered/Resolved]
  - Emotional distress [Unknown]
  - Pain [Unknown]
  - Skin irritation [Recovering/Resolving]
  - Back pain [Recovered/Resolved]
  - Skin warm [Recovered/Resolved]
  - Tension [Unknown]
  - Pruritus [Unknown]
  - Injection site bruising [Unknown]
  - Nervousness [Unknown]
  - Fear [Unknown]

NARRATIVE: CASE EVENT DATE: 201005
